FAERS Safety Report 7036298-3 (Version None)
Quarter: 2010Q4

REPORT INFORMATION
  Report Type: 
  Country: None (occurrence: None)
  Receive Date: 20101008
  Receipt Date: 20100928
  Transmission Date: 20110411
  Serious: Yes (Other)
  Sender: FDA-Public Use
  Company Number: GB-ABBOTT-10P-167-0674431-00

PATIENT
  Age: 29 Year
  Sex: Male

DRUGS (7)
  1. VALPROATE SODIUM [Suspect]
     Indication: EPILEPSY
     Dates: start: 20090101
  2. VENLAFAXINE HCL [Suspect]
     Indication: BIPOLAR I DISORDER
     Dosage: DAILY
  3. OLANZAPINE [Suspect]
     Indication: BIPOLAR I DISORDER
  4. QUETIAPINE [Suspect]
     Indication: BIPOLAR I DISORDER
  5. HEROIN [Suspect]
     Indication: DRUG ABUSE
  6. LSD [Suspect]
     Indication: DRUG ABUSE
  7. METHADONE [Suspect]
     Indication: DRUG ABUSE

REACTIONS (1)
  - OSTEOPOROSIS [None]
